FAERS Safety Report 23815343 (Version 1)
Quarter: 2024Q2

REPORT INFORMATION
  Report Type: Spontaneous
  Country: US (occurrence: US)
  Receive Date: 20240503
  Receipt Date: 20240503
  Transmission Date: 20240716
  Serious: No
  Sender: FDA-Public Use
  Company Number: US-PFIZER INC-PV202400057347

PATIENT
  Age: 27 Year

DRUGS (2)
  1. CIBINQO [Interacting]
     Active Substance: ABROCITINIB
  2. PROZAC [Interacting]
     Active Substance: FLUOXETINE HYDROCHLORIDE

REACTIONS (1)
  - Drug interaction [Unknown]
